FAERS Safety Report 14243560 (Version 1)
Quarter: 2017Q4

REPORT INFORMATION
  Report Type: Spontaneous
  Country: JP (occurrence: JP)
  Receive Date: 20171201
  Receipt Date: 20171201
  Transmission Date: 20180321
  Serious: Yes (Other)
  Sender: FDA-Public Use
  Company Number: JP-MYLANLABS-2017M1075398

PATIENT
  Age: 61 Year
  Sex: Female

DRUGS (5)
  1. PROPOFOL. [Concomitant]
     Active Substance: PROPOFOL
     Indication: PRODUCT USED FOR UNKNOWN INDICATION
     Route: 065
  2. DEXMEDETOMIDINE. [Suspect]
     Active Substance: DEXMEDETOMIDINE
     Dosage: 0.8 MICROG/KG/HOUR
     Route: 065
  3. NALOXONE [Concomitant]
     Active Substance: NALOXONE
     Indication: PRODUCT USED FOR UNKNOWN INDICATION
     Dosage: 0.1 MG
     Route: 065
  4. FENTANYL. [Suspect]
     Active Substance: FENTANYL
     Indication: ANALGESIC THERAPY
     Dosage: TOTAL DOSE WAS 1.6 MG/KG FOR 30 DAYS, INCLUDED LARGE AMOUNT OF FENTANYL FOR WOUND LEVAGE
     Route: 065
  5. DEXMEDETOMIDINE. [Suspect]
     Active Substance: DEXMEDETOMIDINE
     Indication: SEDATIVE THERAPY
     Dosage: 0.3 MICROG/KG/HOUR WHICH WAS INCREASED TO 0.8 MICROG/KG/HOUR
     Route: 065

REACTIONS (3)
  - Respiratory depression [Unknown]
  - Drug resistance [Unknown]
  - Drug withdrawal syndrome [Recovered/Resolved]
